FAERS Safety Report 16928632 (Version 1)
Quarter: 2019Q4

REPORT INFORMATION
  Report Type: Spontaneous
  Country: HU (occurrence: HU)
  Receive Date: 20191017
  Receipt Date: 20191017
  Transmission Date: 20200122
  Serious: Yes (Other)
  Sender: FDA-Public Use
  Company Number: HU-TEVA-2019-HU-1121411

PATIENT
  Age: 35 Year
  Sex: Male

DRUGS (1)
  1. COPAXONE [Suspect]
     Active Substance: GLATIRAMER ACETATE
     Indication: MULTIPLE SCLEROSIS
     Dosage: 1 DOSAGE FORM 40 MG THREE TIMES A WEEK. ADMINISTRATION ON 03/08/2019 WAS FOLLOWED WITH IMMEDIATE ADV
     Route: 058
     Dates: start: 20180226

REACTIONS (3)
  - Loss of consciousness [Recovered/Resolved]
  - Hypersensitivity [Recovered/Resolved]
  - Seizure [Recovered/Resolved]

NARRATIVE: CASE EVENT DATE: 20190803
